FAERS Safety Report 9282100 (Version 1)
Quarter: 2013Q2

REPORT INFORMATION
  Report Type: Spontaneous
  Country: US (occurrence: None)
  Receive Date: 20130508
  Receipt Date: 20130508
  Transmission Date: 20140414
  Serious: Yes (Hospitalization)
  Sender: FDA-Public Use
  Company Number: None

PATIENT
  Age: 59 Year
  Sex: Male
  Weight: 87.3 kg

DRUGS (11)
  1. TACROLIMUS [Suspect]
     Indication: LIVER TRANSPLANT
     Dosage: 1MG - 5MG Q12HOURS PO
     Route: 048
     Dates: start: 20110321, end: 20110331
  2. ACYCLOVIR [Concomitant]
  3. ATOVAQUONE [Concomitant]
  4. AZATHIOPRINE [Concomitant]
  5. DOCUSATE [Concomitant]
  6. FLUCONAZOLE [Concomitant]
  7. INSULIN ASPART [Concomitant]
  8. MULTIVITAMIN [Concomitant]
  9. NYSTATIN [Concomitant]
  10. PREDNISONE [Concomitant]
  11. THIAMINE [Concomitant]

REACTIONS (7)
  - Confusional state [None]
  - Disorientation [None]
  - Speech disorder [None]
  - Decreased activity [None]
  - Delirium [None]
  - Convulsion [None]
  - Unresponsive to stimuli [None]
